FAERS Safety Report 7419448-6 (Version None)
Quarter: 2011Q1

REPORT INFORMATION
  Report Type: 
  Country: None (occurrence: None)
  Receive Date: 20110302
  Receipt Date: 20101108
  Transmission Date: 20110831
  Serious: No
  Sender: FDA-Public Use
  Company Number: 021726

PATIENT
  Sex: Female

DRUGS (1)
  1. CERTOLIZUMAB [Suspect]
     Dosage: SUBCUTANEOUS
     Route: 058
     Dates: start: 20101106

REACTIONS (2)
  - INJECTION SITE PAIN [None]
  - INJECTION SITE ERYTHEMA [None]
